FAERS Safety Report 7528286-5 (Version None)
Quarter: 2011Q2

REPORT INFORMATION
  Report Type: 
  Country: None (occurrence: None)
  Receive Date: 20110607
  Receipt Date: 20100804
  Transmission Date: 20111010
  Serious: No
  Sender: FDA-Public Use
  Company Number: US-ASTRAZENECA-2010SE36533

PATIENT
  Sex: Female

DRUGS (1)
  1. PRILOSEC [Suspect]
     Route: 048

REACTIONS (5)
  - HEADACHE [None]
  - BONE PAIN [None]
  - ARTHRITIS [None]
  - SKIN PAPILLOMA [None]
  - ARTHRALGIA [None]
